FAERS Safety Report 8585299-2 (Version None)
Quarter: 2012Q3

REPORT INFORMATION
  Report Type: 
  Country: None (occurrence: None)
  Receive Date: 20120810
  Receipt Date: 20120802
  Transmission Date: 20120928
  Serious: Yes (Other)
  Sender: FDA-Public Use
  Company Number: US-CELGENEUS-163-21880-12080841

PATIENT
  Sex: Male
  Weight: 82.4 kg

DRUGS (7)
  1. CARVEDILOL [Concomitant]
     Indication: ATRIAL FIBRILLATION
     Dosage: 6.25 MILLIGRAM
     Route: 048
     Dates: start: 20110210
  2. MELPHALAN HYDROCHLORIDE [Concomitant]
     Indication: MULTIPLE MYELOMA
     Route: 065
     Dates: start: 20110121, end: 20110519
  3. PREDNISONE TAB [Concomitant]
     Indication: MULTIPLE MYELOMA
     Route: 065
     Dates: start: 20110121, end: 20110519
  4. CARVEDILOL [Concomitant]
     Indication: HYPERTENSION
  5. METFORMIN HYDROCHLORIDE [Concomitant]
     Indication: TYPE 2 DIABETES MELLITUS
     Dosage: 2000 MILLIGRAM
     Route: 048
     Dates: start: 20101123
  6. REVLIMID [Suspect]
     Indication: MULTIPLE MYELOMA
     Route: 048
     Dates: start: 20110121, end: 20110519
  7. ZOMETA [Concomitant]
     Dosage: 4 MILLIGRAM
     Route: 041
     Dates: start: 20110318

REACTIONS (1)
  - SQUAMOUS CELL CARCINOMA OF SKIN [None]
